FAERS Safety Report 5590688-4 (Version None)
Quarter: 2008Q1

REPORT INFORMATION
  Report Type: 
  Country: None (occurrence: None)
  Receive Date: 20080110
  Receipt Date: 20071226
  Transmission Date: 20080703
  Serious: Yes (Other)
  Sender: FDA-Public Use
  Company Number: STI-2007-02234

PATIENT
  Sex: Male

DRUGS (1)
  1. 593A SARNA SENSITIVE LOTION (PRAMOXINE HYDROCHLORIDE) (PRAMOCAINE HYDR [Suspect]
     Indication: SKIN CHAPPED
     Dosage: TOPICAL
     Route: 061
     Dates: end: 20070101

REACTIONS (3)
  - ABDOMINAL PAIN UPPER [None]
  - CHILLS [None]
  - CONSTIPATION [None]
